FAERS Safety Report 8044055-4 (Version None)
Quarter: 2012Q1

REPORT INFORMATION
  Report Type: 
  Country: None (occurrence: None)
  Receive Date: 20120113
  Receipt Date: 20120109
  Transmission Date: 20120608
  Serious: Yes (Hospitalization, Other)
  Sender: FDA-Public Use
  Company Number: US-JNJFOC-20101200658

PATIENT
  Sex: Female

DRUGS (3)
  1. LEVAQUIN [Suspect]
     Indication: PNEUMONIA
     Route: 048
     Dates: start: 19980101, end: 20061231
  2. LEVAQUIN [Suspect]
     Indication: UPPER RESPIRATORY TRACT INFECTION
     Route: 048
     Dates: start: 19980101, end: 20061231
  3. PREDNISONE [Suspect]
     Indication: ARTHRITIS
     Route: 065

REACTIONS (2)
  - TRIGGER FINGER [None]
  - ROTATOR CUFF SYNDROME [None]
